FAERS Safety Report 7620591-7 (Version None)
Quarter: 2011Q3

REPORT INFORMATION
  Report Type: 
  Country: None (occurrence: None)
  Receive Date: 20110719
  Receipt Date: 20110713
  Transmission Date: 20111222
  Serious: Yes (Other)
  Sender: FDA-Public Use
  Company Number: US-BAYER-2011-062096

PATIENT

DRUGS (1)
  1. SORAFENIB (RAF KINASE INHIBITOR) [Suspect]
     Indication: DESMOID TUMOUR
     Dosage: DAILY DOSE 400 MG
     Route: 048

REACTIONS (4)
  - SCOTOMA [None]
  - ABDOMINAL PAIN [None]
  - VISION BLURRED [None]
  - TOXICITY TO VARIOUS AGENTS [None]
